FAERS Safety Report 23675397 (Version 1)
Quarter: 2024Q1

REPORT INFORMATION
  Report Type: Spontaneous
  Country: PT (occurrence: PT)
  Receive Date: 20240327
  Receipt Date: 20240327
  Transmission Date: 20240410
  Serious: Yes (Other)
  Sender: FDA-Public Use
  Company Number: PT-INFARMED-A202403-0

PATIENT
  Age: 42 Year
  Sex: Female

DRUGS (7)
  1. CAPTOPRIL [Suspect]
     Active Substance: CAPTOPRIL
     Indication: Hypertension
     Dosage: 25 MILLIGRAM
     Route: 048
     Dates: start: 20220711, end: 20220711
  2. PANTOPRAZOLE SODIUM [Concomitant]
     Active Substance: PANTOPRAZOLE SODIUM
     Indication: Product used for unknown indication
     Dosage: 40 MILLIGRAM/SQ.METER, ONCE A DAY (PANTOPRAZOLE 40MG 1+0+0)
     Route: 048
  3. SPIRONOLACTONE [Concomitant]
     Active Substance: SPIRONOLACTONE
     Indication: Product used for unknown indication
     Dosage: 100 MILLIGRAM, ONCE A DAY (SPIRONOLACTONE 100MG 1+0+0)
     Route: 048
  4. ENOXAPARIN SODIUM [Concomitant]
     Active Substance: ENOXAPARIN SODIUM
     Indication: Product used for unknown indication
     Dosage: 80 MILLIGRAM, ONCE A DAY (SUBCUTANEOUS ENOXAPARIN 80 MG + 60 MG)
     Route: 058
  5. BISOPROLOL FUMARATE [Concomitant]
     Active Substance: BISOPROLOL FUMARATE
     Indication: Product used for unknown indication
     Dosage: 10 MILLIGRAM, ONCE A DAY ( BISOPROLOL (CONCOR) 10MG 1+0+0)
     Route: 048
  6. LEVOTHYROXINE [Concomitant]
     Active Substance: LEVOTHYROXINE\LEVOTHYROXINE SODIUM
     Indication: Product used for unknown indication
     Dosage: 100 MICROGRAM, ONCE A DAY ( LEVOTHYROXINE 100 MCG 1+0+0)
     Route: 048
  7. ENOXAPARIN SODIUM [Concomitant]
     Active Substance: ENOXAPARIN SODIUM
     Indication: Product used for unknown indication
     Dosage: 60 MILLIGRAM, ONCE A DAY (SUBCUTANEOUS ENOXAPARIN 80 MG + 60 MG;)
     Route: 058

REACTIONS (1)
  - Localised oedema [Recovered/Resolved]

NARRATIVE: CASE EVENT DATE: 20220711
